FAERS Safety Report 6254483-5 (Version None)
Quarter: 2009Q3

REPORT INFORMATION
  Report Type: 
  Country: None (occurrence: None)
  Receive Date: 20090701
  Receipt Date: 20090701
  Transmission Date: 20100115
  Serious: Yes (Other)
  Sender: FDA-Public Use
  Company Number: None

PATIENT
  Age: 29 Year
  Sex: Female
  Weight: 62.5964 kg

DRUGS (2)
  1. AVELOX [Suspect]
     Indication: BRONCHITIS
     Dosage: 400MG 1X/DAY PO
     Route: 048
     Dates: start: 20090624, end: 20090624
  2. AVELOX [Suspect]
     Indication: PRODUCTIVE COUGH
     Dosage: 400MG 1X/DAY PO
     Route: 048
     Dates: start: 20090624, end: 20090624

REACTIONS (6)
  - ANXIETY [None]
  - BURNING SENSATION [None]
  - DIZZINESS [None]
  - GAIT DISTURBANCE [None]
  - IMPAIRED WORK ABILITY [None]
  - TREMOR [None]
